FAERS Safety Report 21678388 (Version 2)
Quarter: 2023Q4

REPORT INFORMATION
  Report Type: Report from Study
  Country: LT (occurrence: LT)
  Receive Date: 20221203
  Receipt Date: 20231018
  Transmission Date: 20240110
  Serious: Yes (Other)
  Sender: FDA-Public Use
  Company Number: LT-002147023-NVSC2022LT278617

PATIENT

DRUGS (1)
  1. MAYZENT [Suspect]
     Active Substance: SIPONIMOD
     Indication: Product used for unknown indication
     Dosage: UNK
     Route: 065

REACTIONS (1)
  - Secondary progressive multiple sclerosis [Recovered/Resolved]

NARRATIVE: CASE EVENT DATE: 20220912
